FAERS Safety Report 5962217-4 (Version None)
Quarter: 2008Q4

REPORT INFORMATION
  Report Type: 
  Country: None (occurrence: None)
  Receive Date: 20081121
  Receipt Date: 20081119
  Transmission Date: 20090506
  Serious: Yes (Hospitalization, Other)
  Sender: FDA-Public Use
  Company Number: US-PURDUE-USA_2008_0035914

PATIENT
  Age: 59 Year
  Sex: Male

DRUGS (6)
  1. MORPHINE SULFATE [Suspect]
     Indication: PAIN
     Dosage: 60 MG, TID
  2. CLONAZEPAM [Concomitant]
     Indication: CONVULSION
     Dosage: 2 MG, BID
  3. MARIJUANA [Concomitant]
     Indication: EATING DISORDER
  4. HYDROCODONE BITARTRATE [Concomitant]
     Indication: BREAKTHROUGH PAIN
     Dosage: 7.5 MG, BID
  5. LISINOPRIL [Concomitant]
     Indication: BLOOD PRESSURE
     Dosage: 20 MG, DAILY
  6. ANTI-SMOKING AGENTS [Concomitant]
     Indication: SMOKING CESSATION THERAPY
     Dosage: UNK PATCH, DAILY

REACTIONS (7)
  - CHOLELITHIASIS [None]
  - CONVULSION [None]
  - GASTROINTESTINAL ULCER HAEMORRHAGE [None]
  - HAEMATEMESIS [None]
  - MALAISE [None]
  - PANCREATITIS [None]
  - RECTAL HAEMORRHAGE [None]
